FAERS Safety Report 19910990 (Version 3)
Quarter: 2022Q1

REPORT INFORMATION
  Report Type: Spontaneous
  Country: JP (occurrence: JP)
  Receive Date: 20211004
  Receipt Date: 20220125
  Transmission Date: 20220423
  Serious: Yes (Other)
  Sender: FDA-Public Use
  Company Number: JP-MSD-M2021-19251

PATIENT
  Age: 65 Year
  Sex: Male

DRUGS (4)
  1. KEYTRUDA [Suspect]
     Active Substance: PEMBROLIZUMAB
     Indication: Renal cell carcinoma stage IV
     Dosage: 200 MILLIGRAM, Q3W
     Route: 041
     Dates: start: 20210629
  2. AXITINIB [Suspect]
     Active Substance: AXITINIB
     Indication: Renal cell carcinoma stage IV
     Dosage: 6 MILLIGRAM, BID
     Route: 048
     Dates: start: 20210629, end: 20210809
  3. AXITINIB [Suspect]
     Active Substance: AXITINIB
     Dosage: 6 MILLIGRAM, EVERY DAY
     Route: 048
     Dates: start: 20210810, end: 20210821
  4. AXITINIB [Suspect]
     Active Substance: AXITINIB
     Dosage: 6 MILLIGRAM
     Route: 048

REACTIONS (5)
  - Cardiomyopathy [Recovered/Resolved]
  - Immune-mediated hypothyroidism [Recovered/Resolved]
  - Platelet count decreased [Recovered/Resolved]
  - Hepatic function abnormal [Recovered/Resolved]
  - Dysphonia [Recovered/Resolved]

NARRATIVE: CASE EVENT DATE: 20210810
